FAERS Safety Report 25425620 (Version 3)
Quarter: 2025Q3

REPORT INFORMATION
  Report Type: Report from Study
  Country: US (occurrence: US)
  Receive Date: 20250611
  Receipt Date: 20250728
  Transmission Date: 20251020
  Serious: Yes (Hospitalization)
  Sender: JAZZ
  Company Number: US-JAZZ PHARMACEUTICALS-2025-US-009627

PATIENT
  Sex: Male
  Weight: 39.456 kg

DRUGS (8)
  1. EPIDIOLEX [Suspect]
     Active Substance: CANNABIDIOL
     Indication: Lennox-Gastaut syndrome
     Dosage: 2 MILLILITER, BID
     Dates: start: 202501
  2. EPIDIOLEX [Suspect]
     Active Substance: CANNABIDIOL
     Dosage: 1.7 MILLILITER IN AM, 2.0 ML IN PM BID
  3. EPIDIOLEX [Suspect]
     Active Substance: CANNABIDIOL
     Dosage: 2 MILLILITER, BID
     Dates: start: 202501
  4. EPIDIOLEX [Suspect]
     Active Substance: CANNABIDIOL
     Dosage: 2 MILLILITER, BID
     Dates: start: 202501
  5. EPIDIOLEX [Suspect]
     Active Substance: CANNABIDIOL
     Dosage: 2.5 MILLILITER, BID
     Dates: start: 202501
  6. EPIDIOLEX [Suspect]
     Active Substance: CANNABIDIOL
     Dosage: 10.21 MILLIGRAM/KILOGRAM/DAY 2.2 ML
  7. DEPAKOTE [Suspect]
     Active Substance: DIVALPROEX SODIUM
     Indication: Product used for unknown indication
  8. DIVALPROEX SODIUM [Suspect]
     Active Substance: DIVALPROEX SODIUM
     Indication: Product used for unknown indication

REACTIONS (12)
  - Hospitalisation [Unknown]
  - Atonic seizures [Not Recovered/Not Resolved]
  - Multiple allergies [Recovering/Resolving]
  - Fall [Not Recovered/Not Resolved]
  - Skin laceration [Unknown]
  - Atonic seizures [Recovered/Resolved]
  - Weight decreased [Unknown]
  - Somnolence [Recovering/Resolving]
  - Lethargy [Recovering/Resolving]
  - Diarrhoea [Not Recovered/Not Resolved]
  - Irritability [Not Recovered/Not Resolved]
  - Decreased appetite [Unknown]

NARRATIVE: CASE EVENT DATE: 20250101
